FAERS Safety Report 8530651-4 (Version None)
Quarter: 2012Q3

REPORT INFORMATION
  Report Type: 
  Country: None (occurrence: None)
  Receive Date: 20120723
  Receipt Date: 20120712
  Transmission Date: 20120928
  Serious: Yes (Hospitalization)
  Sender: FDA-Public Use
  Company Number: US-ROCHE-1076078

PATIENT
  Sex: Male

DRUGS (5)
  1. TELAPREVIR [Suspect]
     Indication: HEPATITIS C
     Dates: start: 20110930
  2. RIBAVIRIN [Suspect]
     Indication: HEPATITIS C
     Route: 048
     Dates: start: 20110930
  3. PEGASYS [Suspect]
  4. PEGASYS [Suspect]
     Indication: HEPATITIS C
     Route: 058
     Dates: start: 20110930
  5. RIBAVIRIN [Suspect]
     Dosage: DEVIDED DOSE
     Route: 048

REACTIONS (6)
  - ANAEMIA [None]
  - ERYTHEMA [None]
  - THYROID DISORDER [None]
  - OEDEMA [None]
  - FLUID RETENTION [None]
  - ELECTROLYTE IMBALANCE [None]
